FAERS Safety Report 23106381 (Version 1)
Quarter: 2023Q4

REPORT INFORMATION
  Report Type: Spontaneous
  Country: US (occurrence: US)
  Receive Date: 20231025
  Receipt Date: 20231025
  Transmission Date: 20240109
  Serious: No
  Sender: FDA-Public Use
  Company Number: US-BAUSCH-BL-2023-015747

PATIENT
  Age: 77 Year
  Sex: Female

DRUGS (2)
  1. TRETINOIN [Suspect]
     Active Substance: TRETINOIN
     Indication: Skin disorder
     Route: 061
     Dates: start: 1988
  2. TRETINOIN [Suspect]
     Active Substance: TRETINOIN
     Dosage: USED EVERY TWO TO 3 DAYS
     Route: 061
     Dates: start: 2023

REACTIONS (2)
  - Drug ineffective [Unknown]
  - Product quality issue [Unknown]
